FAERS Safety Report 6480463-0 (Version None)
Quarter: 2009Q4

REPORT INFORMATION
  Report Type: 
  Country: None (occurrence: None)
  Receive Date: 20091202
  Receipt Date: 20091120
  Transmission Date: 20100525
  Serious: Yes (Hospitalization)
  Sender: FDA-Public Use
  Company Number: TPA2009A03247

PATIENT
  Age: 86 Year
  Sex: Female
  Weight: 65.7 kg

DRUGS (11)
  1. KAPIDEX [Suspect]
     Indication: GASTROOESOPHAGEAL REFLUX DISEASE
     Dosage: 60 MG, 1 IN 1 D, PER ORAL ; 60 MG, 1 IN 1 D, PER ORAL
     Route: 048
     Dates: start: 20090911, end: 20091001
  2. KAPIDEX [Suspect]
     Indication: HIATUS HERNIA
     Dosage: 60 MG, 1 IN 1 D, PER ORAL ; 60 MG, 1 IN 1 D, PER ORAL
     Route: 048
     Dates: start: 20090911, end: 20091001
  3. KAPIDEX [Suspect]
     Indication: GASTROOESOPHAGEAL REFLUX DISEASE
     Dosage: 60 MG, 1 IN 1 D, PER ORAL ; 60 MG, 1 IN 1 D, PER ORAL
     Route: 048
     Dates: start: 20091001
  4. KAPIDEX [Suspect]
     Indication: HIATUS HERNIA
     Dosage: 60 MG, 1 IN 1 D, PER ORAL ; 60 MG, 1 IN 1 D, PER ORAL
     Route: 048
     Dates: start: 20091001
  5. TEKTURNA (ALL OTHER THERAPEUTIC PRODUCTS) [Concomitant]
  6. ATENOLOL [Concomitant]
  7. MULTIVITAMIN [Concomitant]
  8. UNSPECIFIED NASAL SPRAY (OXYMETAZOLINE HYDROCHLORIDE) [Concomitant]
  9. CODEINE COUGH SYRUP(CODEINE PHOSPHATE) [Concomitant]
  10. DIOVAN [Concomitant]
  11. HYROCHLOROTHIAZIDE(HYDROCHLOROTHIAZIDE) [Concomitant]

REACTIONS (4)
  - DIARRHOEA [None]
  - FEELING ABNORMAL [None]
  - THROMBOTIC STROKE [None]
  - VISUAL IMPAIRMENT [None]
